FAERS Safety Report 19203260 (Version 1)
Quarter: 2021Q2

REPORT INFORMATION
  Report Type: Spontaneous
  Country: JP (occurrence: GB)
  Receive Date: 20210503
  Receipt Date: 20210503
  Transmission Date: 20210717
  Serious: Yes (Other)
  Sender: FDA-Public Use
  Company Number: JP-TWI PHARMACEUTICAL, INC-2021SCTW000031

PATIENT

DRUGS (7)
  1. ATORVASTATIN [Concomitant]
     Active Substance: ATORVASTATIN
     Indication: PRODUCT USED FOR UNKNOWN INDICATION
     Dosage: UNK
     Route: 065
  2. OLMESARTAN [Concomitant]
     Active Substance: OLMESARTAN
     Indication: PRODUCT USED FOR UNKNOWN INDICATION
     Dosage: UNK
     Route: 065
  3. NIFEDIPINE EXTENDED?RELEASE TABLETS USP [Suspect]
     Active Substance: NIFEDIPINE
     Indication: PRODUCT USED FOR UNKNOWN INDICATION
     Dosage: UNK
     Route: 065
  4. DIPHENHYDRAMINE. [Concomitant]
     Active Substance: DIPHENHYDRAMINE
     Indication: PRURITUS
     Dosage: UNK
     Route: 065
  5. MOISTURIZER [Concomitant]
     Active Substance: UNSPECIFIED INGREDIENT
     Indication: PRURITUS
     Dosage: UNK
     Route: 065
  6. ICODEXTRIN [Concomitant]
     Active Substance: ICODEXTRIN
     Indication: PERITONEAL DIALYSIS
     Dosage: UNK, (8?H, NIGHT ECHANGE)
     Route: 065
  7. CALCIUM CARBONATE. [Concomitant]
     Active Substance: CALCIUM CARBONATE
     Indication: PRODUCT USED FOR UNKNOWN INDICATION
     Dosage: UNK
     Route: 065

REACTIONS (1)
  - Pemphigoid [Recovered/Resolved]
